FAERS Safety Report 7735251-1 (Version None)
Quarter: 2011Q3

REPORT INFORMATION
  Report Type: 
  Country: None (occurrence: None)
  Receive Date: 20110907
  Receipt Date: 20110831
  Transmission Date: 20111222
  Serious: Yes (Disabling)
  Sender: FDA-Public Use
  Company Number: US-SANOFI-AVENTIS-2011SA046554

PATIENT
  Age: 51 Year
  Sex: Male
  Weight: 72.57 kg

DRUGS (2)
  1. LANTUS [Suspect]
     Dosage: 30 UNITS IN AM AND 30 UNITS IN PM DOSE:30 UNIT(S)
     Route: 058
     Dates: start: 20080101
  2. REGULAR INSULIN [Concomitant]

REACTIONS (1)
  - DISABILITY [None]
